FAERS Safety Report 5574235-9 (Version None)
Quarter: 2007Q4

REPORT INFORMATION
  Report Type: 
  Country: None (occurrence: None)
  Receive Date: 20071221
  Receipt Date: 20071212
  Transmission Date: 20080405
  Serious: Yes (Disabling, Other)
  Sender: FDA-Public Use
  Company Number: 17979

PATIENT
  Age: 48 Year
  Sex: Female

DRUGS (6)
  1. VINORELBINE [Suspect]
     Indication: BREAST CANCER
     Dosage: 25 MG/M2 PER_CYCLE
  2. VINORELBINE [Suspect]
     Indication: BREAST CANCER
     Dosage: 30 MG/M2 FREQ
  3. VINORELBINE [Suspect]
     Indication: BREAST CANCER
     Dosage: 25 MG/M2 FREQ
  4. ONXOL [Suspect]
     Indication: BREAST CANCER
     Dosage: 175 MG/M2 PER_CYCLE
     Dates: start: 20041201
  5. RADIOTHERAPY [Concomitant]
  6. CAPECITABINE [Concomitant]

REACTIONS (6)
  - DRUG INTOLERANCE [None]
  - HYPERAESTHESIA [None]
  - METASTASIS [None]
  - MUSCULOSKELETAL PAIN [None]
  - PARAESTHESIA [None]
  - VOCAL CORD PARALYSIS [None]
